FAERS Safety Report 13429739 (Version 5)
Quarter: 2017Q3

REPORT INFORMATION
  Report Type: Report from Study
  Country: None (occurrence: KR)
  Receive Date: 20170412
  Receipt Date: 20170713
  Transmission Date: 20171127
  Serious: Yes (Hospitalization)
  Sender: FDA-Public Use
  Company Number: KR-ABBVIE-17K-090-1939773-00

PATIENT
  Age: 32 Year
  Sex: Female
  Weight: 53 kg

DRUGS (86)
  1. METHOTREXATE. [Concomitant]
     Active Substance: METHOTREXATE
     Route: 048
     Dates: start: 20170308
  2. FOLIC ACID. [Concomitant]
     Active Substance: FOLIC ACID
     Indication: PROPHYLAXIS
  3. DEFLAZACORT [Concomitant]
     Active Substance: DEFLAZACORT
     Route: 048
     Dates: start: 20170622
  4. PINAVERIUM BROMIDE [Concomitant]
     Active Substance: PINAVERIUM BROMIDE
     Indication: IRRITABLE BOWEL SYNDROME
     Route: 048
     Dates: start: 20160517, end: 20161228
  5. KETAMINE HCL [Concomitant]
     Active Substance: KETAMINE HYDROCHLORIDE
     Route: 042
     Dates: start: 20161122, end: 20161122
  6. ESOMEPRAZOLE W/NAPROXEN [Concomitant]
     Active Substance: ESOMEPRAZOLE MAGNESIUM\NAPROXEN
     Indication: PAIN
     Dosage: 1000/40MG
     Route: 048
     Dates: start: 20161207
  7. PREDNICARBATE. [Concomitant]
     Active Substance: PREDNICARBATE
     Indication: PRURITUS
     Route: 061
     Dates: start: 20170709, end: 20170711
  8. THEOBROMINE [Concomitant]
     Active Substance: THEOBROMINE
     Route: 048
     Dates: start: 20170625, end: 20170625
  9. CHLORHEXIDINE GLUCONATE. [Concomitant]
     Active Substance: CHLORHEXIDINE GLUCONATE
     Indication: STOMATITIS
     Route: 050
     Dates: start: 20161213, end: 20161223
  10. SUCRALFATE. [Concomitant]
     Active Substance: SUCRALFATE
     Indication: GASTRITIS PROPHYLAXIS
     Route: 048
     Dates: start: 20170710, end: 20170711
  11. METHOTREXATE. [Concomitant]
     Active Substance: METHOTREXATE
     Route: 048
     Dates: start: 20160308, end: 20160809
  12. CELECOXIB. [Concomitant]
     Active Substance: CELECOXIB
     Indication: PAIN
     Route: 048
     Dates: start: 20150113, end: 20160517
  13. CYCLOBENZAPRINE HCL [Concomitant]
     Active Substance: CYCLOBENZAPRINE HYDROCHLORIDE
     Indication: PAIN
     Route: 048
     Dates: start: 20160810, end: 20170117
  14. KETAMINE HCL [Concomitant]
     Active Substance: KETAMINE HYDROCHLORIDE
     Route: 042
     Dates: start: 20161218, end: 20161220
  15. KETAMINE HCL [Concomitant]
     Active Substance: KETAMINE HYDROCHLORIDE
     Route: 042
     Dates: start: 20161221, end: 20161227
  16. KETAMINE HCL [Concomitant]
     Active Substance: KETAMINE HYDROCHLORIDE
     Route: 042
     Dates: start: 20170208, end: 20170219
  17. KETAMINE HCL [Concomitant]
     Active Substance: KETAMINE HYDROCHLORIDE
     Route: 042
     Dates: start: 20170710, end: 20170711
  18. ZOLMITRIPTAN. [Concomitant]
     Active Substance: ZOLMITRIPTAN
     Route: 048
     Dates: start: 20170629, end: 20170711
  19. CHLORHEXIDINE GLUCONATE. [Concomitant]
     Active Substance: CHLORHEXIDINE GLUCONATE
     Indication: PROPHYLAXIS
     Dates: start: 20170207, end: 20170222
  20. MEDILAC DS [Concomitant]
     Indication: IRRITABLE BOWEL SYNDROME
     Route: 048
     Dates: start: 20170405
  21. MEDILAC DS [Concomitant]
     Indication: PROPHYLAXIS
  22. LACTULOSE CONCENTRATE [Concomitant]
     Indication: PROPHYLAXIS
     Route: 048
     Dates: start: 20170615, end: 20170615
  23. CHLORPHENIRAMINE MALEATE. [Concomitant]
     Active Substance: CHLORPHENIRAMINE MALEATE
     Indication: PROPHYLAXIS
     Route: 042
     Dates: start: 20170614, end: 20170614
  24. SCOPOLAMINE [Concomitant]
     Active Substance: SCOPOLAMINE
     Indication: PROPHYLAXIS OF NAUSEA AND VOMITING
     Route: 061
     Dates: start: 20170708, end: 20170710
  25. METOCLOPRAMIDE. [Concomitant]
     Active Substance: METOCLOPRAMIDE
     Route: 042
     Dates: start: 20170606, end: 20170607
  26. HUMIRA [Suspect]
     Active Substance: ADALIMUMAB
     Indication: ANKYLOSING SPONDYLITIS
     Route: 058
     Dates: start: 20160419
  27. DEFLAZACORT [Concomitant]
     Active Substance: DEFLAZACORT
     Route: 048
     Dates: start: 20170617, end: 20170620
  28. KETAMINE HCL [Concomitant]
     Active Substance: KETAMINE HYDROCHLORIDE
     Route: 042
     Dates: start: 20161228, end: 20170101
  29. KETAMINE HCL [Concomitant]
     Active Substance: KETAMINE HYDROCHLORIDE
     Route: 042
     Dates: start: 20170614, end: 20170618
  30. KETAMINE HCL [Concomitant]
     Active Substance: KETAMINE HYDROCHLORIDE
     Route: 042
     Dates: start: 20170705, end: 20170709
  31. IVY EXTRACT [Concomitant]
     Active Substance: IVY EXTRACT
     Route: 048
     Dates: start: 20170219, end: 20170219
  32. METHOTREXATE. [Concomitant]
     Active Substance: METHOTREXATE
     Indication: ANKYLOSING SPONDYLITIS
     Route: 048
     Dates: start: 20150520, end: 20160307
  33. ACECLOFENAC [Concomitant]
     Active Substance: ACECLOFENAC
     Route: 048
     Dates: start: 20160920, end: 20161031
  34. CYCLOBENZAPRINE HCL [Concomitant]
     Active Substance: CYCLOBENZAPRINE HYDROCHLORIDE
     Route: 048
     Dates: start: 20170118
  35. PINAVERIUM BROMIDE [Concomitant]
     Active Substance: PINAVERIUM BROMIDE
     Route: 048
     Dates: start: 20170121, end: 20170202
  36. ZOLMITRIPTAN. [Concomitant]
     Active Substance: ZOLMITRIPTAN
     Indication: FIBROMYALGIA
     Route: 048
     Dates: start: 20170130, end: 20170222
  37. THEOBROMINE [Concomitant]
     Active Substance: THEOBROMINE
     Route: 048
     Dates: start: 20170219, end: 20170219
  38. THEOBROMINE [Concomitant]
     Active Substance: THEOBROMINE
     Route: 048
     Dates: start: 20170220, end: 20170222
  39. IVY EXTRACT [Concomitant]
     Active Substance: IVY EXTRACT
     Route: 048
     Dates: start: 20170103, end: 20170103
  40. REBAMIPIDE [Concomitant]
     Active Substance: REBAMIPIDE
     Route: 048
     Dates: start: 20170614
  41. CHLORHEXIDINE GLUCONATE. [Concomitant]
     Active Substance: CHLORHEXIDINE GLUCONATE
     Route: 050
     Dates: start: 20170612, end: 20170711
  42. MAGNESIUM HYDROXIDE. [Concomitant]
     Active Substance: MAGNESIUM HYDROXIDE
     Indication: PROPHYLAXIS
  43. LACTULOSE CONCENTRATE [Concomitant]
     Indication: IRRITABLE BOWEL SYNDROME
     Route: 048
     Dates: start: 20170614, end: 20170614
  44. LACTULOSE CONCENTRATE [Concomitant]
     Route: 048
     Dates: start: 20170616, end: 20170616
  45. HYDROXYCHLOROQUINE [Concomitant]
     Active Substance: HYDROXYCHLOROQUINE
     Indication: ANKYLOSING SPONDYLITIS
     Route: 048
     Dates: start: 20150520, end: 20160419
  46. DEFLAZACORT [Concomitant]
     Active Substance: DEFLAZACORT
     Route: 048
     Dates: start: 20170616, end: 20170616
  47. KETAMINE HCL [Concomitant]
     Active Substance: KETAMINE HYDROCHLORIDE
     Dates: start: 20170108, end: 20170123
  48. KETAMINE HCL [Concomitant]
     Active Substance: KETAMINE HYDROCHLORIDE
     Route: 042
     Dates: start: 20170125, end: 20170127
  49. ZOLMITRIPTAN. [Concomitant]
     Active Substance: ZOLMITRIPTAN
     Route: 048
     Dates: start: 20170612
  50. THEOBROMINE [Concomitant]
     Active Substance: THEOBROMINE
     Route: 048
     Dates: start: 20170119, end: 20170123
  51. REBAMIPIDE [Concomitant]
     Active Substance: REBAMIPIDE
     Route: 048
     Dates: start: 20170613, end: 20170613
  52. MAGNESIUM HYDROXIDE. [Concomitant]
     Active Substance: MAGNESIUM HYDROXIDE
     Indication: IRRITABLE BOWEL SYNDROME
     Route: 048
     Dates: start: 20170308
  53. RAMOSETRON [Concomitant]
     Active Substance: RAMOSETRON HYDROCHLORIDE
     Indication: PROPHYLAXIS OF NAUSEA AND VOMITING
     Route: 042
     Dates: start: 20170628
  54. METOCLOPRAMIDE. [Concomitant]
     Active Substance: METOCLOPRAMIDE
     Indication: PROPHYLAXIS OF NAUSEA AND VOMITING
     Route: 042
     Dates: start: 20170605, end: 20170605
  55. FOLIC ACID. [Concomitant]
     Active Substance: FOLIC ACID
     Indication: FOLATE DEFICIENCY
     Route: 048
     Dates: start: 20150520
  56. ACECLOFENAC [Concomitant]
     Active Substance: ACECLOFENAC
     Indication: PAIN
     Route: 048
     Dates: start: 20161101, end: 20161228
  57. DEFLAZACORT [Concomitant]
     Active Substance: DEFLAZACORT
     Route: 048
     Dates: start: 20160106, end: 20160106
  58. DEFLAZACORT [Concomitant]
     Active Substance: DEFLAZACORT
     Route: 048
     Dates: start: 20160108, end: 20160516
  59. DEFLAZACORT [Concomitant]
     Active Substance: DEFLAZACORT
     Dates: start: 20170621, end: 20170621
  60. KETAMINE HCL [Concomitant]
     Active Substance: KETAMINE HYDROCHLORIDE
     Route: 042
     Dates: start: 20161123, end: 20161125
  61. KETAMINE HCL [Concomitant]
     Active Substance: KETAMINE HYDROCHLORIDE
     Route: 042
     Dates: start: 20161126, end: 20161213
  62. KETAMINE HCL [Concomitant]
     Active Substance: KETAMINE HYDROCHLORIDE
     Route: 042
     Dates: start: 20161214, end: 20161217
  63. KETAMINE HCL [Concomitant]
     Active Substance: KETAMINE HYDROCHLORIDE
     Route: 042
     Dates: start: 20170102, end: 20170107
  64. KETAMINE HCL [Concomitant]
     Active Substance: KETAMINE HYDROCHLORIDE
     Route: 042
     Dates: start: 20170128, end: 20170207
  65. CARNITINE OROTATE [Concomitant]
     Active Substance: CARNITINE OROTATE
     Indication: LIVER DISORDER
     Route: 048
     Dates: start: 20161207, end: 20161223
  66. PREDNICARBATE. [Concomitant]
     Active Substance: PREDNICARBATE
     Indication: PROPHYLAXIS
     Route: 061
     Dates: start: 20170130, end: 20170222
  67. THEOBROMINE [Concomitant]
     Active Substance: THEOBROMINE
     Route: 048
     Dates: start: 20170705
  68. IVY EXTRACT [Concomitant]
     Active Substance: IVY EXTRACT
     Indication: COUGH
     Route: 048
     Dates: start: 20161216, end: 20170102
  69. KETOPROFEN. [Concomitant]
     Active Substance: KETOPROFEN
     Indication: FIBROMYALGIA
     Route: 061
     Dates: start: 20170106
  70. CHLOHEXUDUNE GLUCONATE [Concomitant]
     Indication: PRODUCT USED FOR UNKNOWN INDICATION
     Dates: start: 20170612, end: 20170711
  71. DEFLAZACORT [Concomitant]
     Active Substance: DEFLAZACORT
     Indication: ANKYLOSING SPONDYLITIS
     Route: 048
     Dates: start: 20141105, end: 20160105
  72. DEFLAZACORT [Concomitant]
     Active Substance: DEFLAZACORT
     Route: 048
     Dates: start: 20170531, end: 20170615
  73. KETAMINE HCL [Concomitant]
     Active Substance: KETAMINE HYDROCHLORIDE
     Indication: PAIN
     Route: 042
     Dates: start: 20161121, end: 20161121
  74. CARNITINE OROTATE [Concomitant]
     Active Substance: CARNITINE OROTATE
     Indication: PROPHYLAXIS
  75. THEOBROMINE [Concomitant]
     Active Substance: THEOBROMINE
     Indication: PROPHYLAXIS
     Route: 048
     Dates: start: 20161213, end: 20161213
  76. THEOBROMINE [Concomitant]
     Active Substance: THEOBROMINE
     Route: 048
     Dates: start: 20161214, end: 20161231
  77. REBAMIPIDE [Concomitant]
     Active Substance: REBAMIPIDE
     Indication: GASTRITIS PROPHYLAXIS
     Dates: start: 20170219, end: 20170307
  78. EBSTAINE [Concomitant]
     Indication: PROPHYLAXIS
     Route: 048
     Dates: start: 20170708, end: 20170711
  79. METHOTREXATE. [Concomitant]
     Active Substance: METHOTREXATE
     Route: 048
     Dates: start: 20160810, end: 20170307
  80. DEFLAZACORT [Concomitant]
     Active Substance: DEFLAZACORT
     Route: 048
     Dates: start: 20160107, end: 20160107
  81. DEFLAZACORT [Concomitant]
     Active Substance: DEFLAZACORT
     Route: 048
     Dates: start: 20160517, end: 20160712
  82. DULOXETINE HCL [Concomitant]
     Active Substance: DULOXETINE HYDROCHLORIDE
     Indication: FIBROMYALGIA
     Route: 048
     Dates: start: 20160906
  83. THEOBROMINE [Concomitant]
     Active Substance: THEOBROMINE
     Route: 048
     Dates: start: 20170626, end: 20170629
  84. IVY EXTRACT [Concomitant]
     Active Substance: IVY EXTRACT
     Route: 048
     Dates: start: 20170220, end: 20170224
  85. REBAMIPIDE [Concomitant]
     Active Substance: REBAMIPIDE
     Indication: GASTRITIS PROPHYLAXIS
     Route: 048
     Dates: start: 20170612, end: 20170612
  86. METHYLPREDNISOLONE SODIUM SUCCINATE. [Concomitant]
     Active Substance: METHYLPREDNISOLONE SODIUM SUCCINATE
     Indication: PROPHYLAXIS
     Route: 042
     Dates: start: 20170612, end: 20170615

REACTIONS (2)
  - Fibromyalgia [Recovered/Resolved]
  - Fibromyalgia [Recovered/Resolved]

NARRATIVE: CASE EVENT DATE: 20161121
